FAERS Safety Report 4458036-0 (Version None)
Quarter: 2004Q3

REPORT INFORMATION
  Report Type: 
  Country: None (occurrence: None)
  Receive Date: 20040922
  Receipt Date: 20040913
  Transmission Date: 20050211
  Serious: Yes (Other)
  Sender: FDA-Public Use
  Company Number: ENT 2004-0175

PATIENT
  Age: 64 Year
  Sex: Male

DRUGS (3)
  1. COMTAN [Suspect]
     Indication: PARKINSON'S DISEASE
     Dosage: 400 MG
  2. LEVODOPA [Suspect]
     Indication: PARKINSON'S DISEASE
     Dosage: 525 MG
  3. ROPINIROLE [Suspect]
     Indication: PARKINSON'S DISEASE
     Dosage: 15 MG

REACTIONS (12)
  - CONDITION AGGRAVATED [None]
  - DYSKINESIA [None]
  - ECONOMIC PROBLEM [None]
  - EUPHORIC MOOD [None]
  - MARITAL PROBLEM [None]
  - MOTOR DYSFUNCTION [None]
  - OBSESSIVE-COMPULSIVE DISORDER [None]
  - PARKINSONISM [None]
  - PATHOLOGICAL GAMBLING [None]
  - SELF-MEDICATION [None]
  - THINKING ABNORMAL [None]
  - TREATMENT NONCOMPLIANCE [None]
